FAERS Safety Report 24768572 (Version 1)
Quarter: 2024Q4

REPORT INFORMATION
  Report Type: Spontaneous
  Country: US (occurrence: US)
  Receive Date: 20241224
  Receipt Date: 20241224
  Transmission Date: 20250114
  Serious: No
  Sender: ROCHE
  Company Number: US-ROCHE-10000163982

PATIENT
  Age: 91 Year
  Sex: Female
  Weight: 61.23 kg

DRUGS (3)
  1. VABYSMO [Suspect]
     Active Substance: FARICIMAB-SVOA
     Indication: Neovascular age-related macular degeneration
     Route: 065
     Dates: start: 2024
  2. INFLUENZA VIRUS VACCINE [Suspect]
     Active Substance: INFLUENZA VIRUS VACCINE
     Indication: Antiviral prophylaxis
     Dosage: STANDARD VACCINE
     Route: 030
     Dates: start: 202412, end: 202412
  3. LOSARTAN [Concomitant]
     Active Substance: LOSARTAN
     Indication: Blood pressure increased
     Dosage: LOW DOSE
     Route: 048

REACTIONS (1)
  - Hypersensitivity [Not Recovered/Not Resolved]

NARRATIVE: CASE EVENT DATE: 20241201
